FAERS Safety Report 6014991-9 (Version None)
Quarter: 2008Q4

REPORT INFORMATION
  Report Type: 
  Country: None (occurrence: None)
  Receive Date: 20081219
  Receipt Date: 20060522
  Transmission Date: 20090506
  Serious: Yes (Death)
  Sender: FDA-Public Use
  Company Number: US-GENENTECH-225629

PATIENT
  Age: 75 Year

DRUGS (2)
  1. BEVACIZUMAB [Suspect]
     Indication: RENAL CELL CARCINOMA
     Dosage: 5 MG/M2, UNK
     Route: 042
     Dates: start: 20050620
  2. CCI-779 [Suspect]
     Indication: RENAL CELL CARCINOMA
     Dosage: 25 MG, UNK
     Route: 042
     Dates: start: 20050620

REACTIONS (5)
  - ASCITES [None]
  - DISEASE PROGRESSION [None]
  - DYSPEPSIA [None]
  - HAEMOGLOBIN DECREASED [None]
  - PERITONEAL HAEMORRHAGE [None]
